FAERS Safety Report 6141227-0 (Version None)
Quarter: 2009Q2

REPORT INFORMATION
  Report Type: 
  Country: None (occurrence: None)
  Receive Date: 20090402
  Receipt Date: 20090330
  Transmission Date: 20091009
  Serious: Yes (Death)
  Sender: FDA-Public Use
  Company Number: PHHY2009CN09651

PATIENT
  Age: 84 Year
  Sex: Male

DRUGS (1)
  1. MIACALCIN [Suspect]
     Indication: OSTEOPOROSIS
     Dosage: 50 IU, QD
     Route: 030
     Dates: start: 20090317

REACTIONS (2)
  - CARDIAC ARREST [None]
  - CARDIOGENIC SHOCK [None]
